FAERS Safety Report 9702765 (Version 1)
Quarter: 2013Q4

REPORT INFORMATION
  Report Type: Spontaneous
  Country: IT (occurrence: None)
  Receive Date: 20131120
  Receipt Date: 20131120
  Transmission Date: 20140711
  Serious: Yes (Other)
  Sender: FDA-Public Use
  Company Number: FK201304966

PATIENT
  Age: 39 Year
  Sex: Male

DRUGS (1)
  1. OXALIPLATIN [Suspect]
     Indication: COLON CANCER
     Dosage: 1 DOSAGE UNIT, INTRAVENOUS
     Route: 042
     Dates: start: 20130521, end: 20130521

REACTIONS (6)
  - Choking sensation [None]
  - Lip oedema [None]
  - Erythema [None]
  - Malaise [None]
  - Flushing [None]
  - Throat tightness [None]
